FAERS Safety Report 10765970 (Version 1)
Quarter: 2015Q1

REPORT INFORMATION
  Report Type: Spontaneous
  Country: US (occurrence: None)
  Receive Date: 20150204
  Receipt Date: 20150204
  Transmission Date: 20150721
  Serious: Yes (Life-Threatening)
  Sender: FDA-Public Use
  Company Number: None

PATIENT
  Age: 57 Year
  Sex: Female
  Weight: 74.84 kg

DRUGS (1)
  1. REMICADE [Suspect]
     Active Substance: INFLIXIMAB
     Indication: INFLAMMATORY BOWEL DISEASE
     Dosage: EVERY EIGHT WEEKS INTO A VEIN
     Route: 042
     Dates: start: 20110607, end: 20140620

REACTIONS (3)
  - Cough [None]
  - Pain [None]
  - Anaplastic large-cell lymphoma [None]

NARRATIVE: CASE EVENT DATE: 20150203
